FAERS Safety Report 16160414 (Version 6)
Quarter: 2019Q3

REPORT INFORMATION
  Report Type: Report from Study
  Country: US (occurrence: US)
  Receive Date: 20190404
  Receipt Date: 20190729
  Transmission Date: 20191004
  Serious: No
  Sender: FDA-Public Use
  Company Number: US-IPSEN BIOPHARMACEUTICALS, INC.-2019-04061

PATIENT
  Age: 41 Year
  Sex: Female
  Weight: 93.4 kg

DRUGS (10)
  1. SOMATULINE DEPOT [Suspect]
     Active Substance: LANREOTIDE ACETATE
     Indication: NEUROENDOCRINE TUMOUR
     Dosage: UPPER OUTER BUTTOCKS ROTATE BETWEEN SIDES
     Route: 058
     Dates: start: 201503, end: 201901
  2. TIROSINT [Concomitant]
     Active Substance: LEVOTHYROXINE SODIUM
     Route: 048
  3. TRIAMCINOLONE [Concomitant]
     Active Substance: TRIAMCINOLONE
     Dosage: APPLY TO AFFECTED AREA
     Route: 061
  4. CHOLECALCIFEROL [Concomitant]
     Active Substance: CHOLECALCIFEROL
     Route: 048
  5. LORATADINE. [Concomitant]
     Active Substance: LORATADINE
     Route: 048
  6. WELCHOL [Concomitant]
     Active Substance: COLESEVELAM HYDROCHLORIDE
     Dosage: WITH DINNER
  7. SOMATULINE DEPOT [Suspect]
     Active Substance: LANREOTIDE ACETATE
     Indication: NEOPLASM MALIGNANT
     Route: 058
  8. SOMATULINE DEPOT [Suspect]
     Active Substance: LANREOTIDE ACETATE
     Indication: OFF LABEL USE
  9. RANITIDINE. [Concomitant]
     Active Substance: RANITIDINE
  10. MARIJUANA [Concomitant]
     Active Substance: CANNABIS SATIVA SUBSP. INDICA TOP
     Dosage: TINCTURE

REACTIONS (11)
  - Condition aggravated [Recovered/Resolved]
  - Depression [Unknown]
  - Fatigue [Unknown]
  - Oropharyngeal pain [Unknown]
  - Investigation abnormal [Unknown]
  - Urticaria [Unknown]
  - Abdominal pain [Unknown]
  - Asthenia [Unknown]
  - Inappropriate schedule of product administration [Unknown]
  - Bladder spasm [Unknown]
  - Off label use [Unknown]

NARRATIVE: CASE EVENT DATE: 201807
